FAERS Safety Report 9850459 (Version 1)
Quarter: 2013Q4

REPORT INFORMATION
  Report Type: Spontaneous
  Country: US (occurrence: None)
  Receive Date: 20131226
  Receipt Date: 20131226
  Transmission Date: 20140711
  Serious: Yes (Hospitalization, Other)
  Sender: FDA-Public Use
  Company Number: PHEH2012US011960

PATIENT
  Age: 13 Year
  Sex: Female

DRUGS (3)
  1. AFINITOR (RAD) UNKNOWN [Suspect]
     Indication: TUBEROUS SCLEROSIS
     Dosage: 7.5 MG, QD, ORAL
     Route: 048
     Dates: start: 20110604, end: 20120528
  2. LAMICTAL (LAMOTRIGINE) [Concomitant]
  3. CLOBEZAM [Concomitant]

REACTIONS (3)
  - Pneumonia [None]
  - Convulsion [None]
  - Pyrexia [None]
